FAERS Safety Report 6575432-6 (Version None)
Quarter: 2010Q1

REPORT INFORMATION
  Report Type: 
  Country: None (occurrence: None)
  Receive Date: 20100209
  Receipt Date: 20100110
  Transmission Date: 20100710
  Serious: Yes (Hospitalization)
  Sender: FDA-Public Use
  Company Number: FR-ROCHE-684151

PATIENT
  Sex: Female

DRUGS (2)
  1. HERCEPTIN [Suspect]
     Indication: BREAST CANCER
     Route: 042
     Dates: start: 20090804, end: 20091230
  2. TAXOTERE [Concomitant]
     Indication: BREAST CANCER
     Dosage: RECEIVED THREE CYCLES
     Dates: start: 20090804, end: 20090914

REACTIONS (1)
  - CYTOLYTIC HEPATITIS [None]
